FAERS Safety Report 7825606-9 (Version None)
Quarter: 2011Q4

REPORT INFORMATION
  Report Type: 
  Country: None (occurrence: None)
  Receive Date: 20111019
  Receipt Date: 20111012
  Transmission Date: 20120403
  Serious: Yes (Hospitalization, Other)
  Sender: FDA-Public Use
  Company Number: US-AMGEN-USASP2011052786

PATIENT
  Age: 75 Year
  Sex: Male

DRUGS (2)
  1. ENBREL [Suspect]
     Indication: PSORIASIS
  2. ENBREL [Suspect]
     Indication: PSORIATIC ARTHROPATHY
     Dosage: 50 MG, QWK
     Dates: start: 20021101, end: 20110701

REACTIONS (8)
  - HEART RATE IRREGULAR [None]
  - PSORIASIS [None]
  - ABASIA [None]
  - PSORIATIC ARTHROPATHY [None]
  - BLOOD POTASSIUM DECREASED [None]
  - DYSPNOEA [None]
  - OEDEMA PERIPHERAL [None]
  - BRONCHOPNEUMONIA [None]
